FAERS Safety Report 8576013-5 (Version None)
Quarter: 2012Q3

REPORT INFORMATION
  Report Type: 
  Country: None (occurrence: None)
  Receive Date: 20120807
  Receipt Date: 20120731
  Transmission Date: 20120928
  Serious: Yes (Hospitalization)
  Sender: FDA-Public Use
  Company Number: RS-PFIZER INC-2012185089

PATIENT
  Age: 54 Year
  Sex: Male

DRUGS (4)
  1. BROMAZEPAM [Suspect]
     Dosage: 21 MG
  2. CHLORIMIPRAMINE [Suspect]
     Dosage: 125 MG
  3. PREGABALIN [Suspect]
     Dosage: 4.2 G
  4. PREGABALIN [Suspect]
     Indication: GENERALISED ANXIETY DISORDER
     Dosage: 450 MG, DAILY

REACTIONS (1)
  - POISONING DELIBERATE [None]
